FAERS Safety Report 8122919-0 (Version None)
Quarter: 2012Q1

REPORT INFORMATION
  Report Type: 
  Country: None (occurrence: None)
  Receive Date: 20120208
  Receipt Date: 20120126
  Transmission Date: 20120608
  Serious: Yes (Other)
  Sender: FDA-Public Use
  Company Number: PHHY2011DE86652

PATIENT
  Sex: Male
  Weight: 93.5 kg

DRUGS (6)
  1. ACETAMINOPHEN [Concomitant]
     Indication: HEADACHE
     Dosage: 1 DF, BID
  2. AMISULPRIDE [Suspect]
     Dosage: 1 DF, QD
     Route: 048
     Dates: start: 20080101
  3. DIPIPERON [Concomitant]
     Indication: RESTLESSNESS
     Dosage: 1 DF, BID
  4. CITALOPRAM [Suspect]
     Dosage: 1 DF, QD
     Route: 048
     Dates: start: 20080101
  5. CLOZAPINE [Suspect]
     Indication: SCHIZOPHRENIA
     Dosage: 1 DF, QD
     Route: 048
     Dates: start: 20070101
  6. LORAZEPAM [Concomitant]
     Indication: RESTLESSNESS
     Dosage: 1 DF, QD

REACTIONS (1)
  - BLOOD CREATINE PHOSPHOKINASE INCREASED [None]
